FAERS Safety Report 24903491 (Version 1)
Quarter: 2025Q1

REPORT INFORMATION
  Report Type: Spontaneous
  Country: US (occurrence: US)
  Receive Date: 20250130
  Receipt Date: 20250130
  Transmission Date: 20250409
  Serious: No
  Sender: AMNEAL
  Company Number: US-AMNEAL PHARMACEUTICALS-2024-AMRX-00243

PATIENT
  Sex: Female

DRUGS (1)
  1. TRIAMCINOLONE ACETONIDE [Suspect]
     Active Substance: TRIAMCINOLONE ACETONIDE
     Indication: Product used for unknown indication
     Route: 065
     Dates: start: 20240122

REACTIONS (5)
  - Ocular hyperaemia [Recovered/Resolved]
  - Swelling of eyelid [Recovering/Resolving]
  - Hypoaesthesia [Unknown]
  - Eye pain [Unknown]
  - Incorrect route of product administration [Unknown]
